FAERS Safety Report 8501628-X (Version None)
Quarter: 2012Q3

REPORT INFORMATION
  Report Type: 
  Country: None (occurrence: None)
  Receive Date: 20120711
  Receipt Date: 20120705
  Transmission Date: 20120928
  Serious: Yes (Other)
  Sender: FDA-Public Use
  Company Number: CA-AMGEN-CANSP2012035587

PATIENT
  Age: 43 Year
  Sex: Female
  Weight: 60 kg

DRUGS (4)
  1. ABILIFY [Concomitant]
     Route: 048
  2. IMOVANE [Concomitant]
     Route: 048
  3. CONCERTA [Concomitant]
     Route: 048
  4. PROLIA [Suspect]
     Indication: OSTEOPOROSIS
     Dosage: 60 MG, Q6MO
     Route: 058
     Dates: start: 20120501

REACTIONS (5)
  - BACK PAIN [None]
  - AFFECTIVE DISORDER [None]
  - ARTHRALGIA [None]
  - JOINT STIFFNESS [None]
  - RAYNAUD'S PHENOMENON [None]
